FAERS Safety Report 16851378 (Version 3)
Quarter: 2019Q4

REPORT INFORMATION
  Report Type: Spontaneous
  Country: US (occurrence: US)
  Receive Date: 20190925
  Receipt Date: 20191031
  Transmission Date: 20200122
  Serious: Yes (Other)
  Sender: FDA-Public Use
  Company Number: US-PFIZER INC-2019410602

PATIENT
  Age: 67 Year
  Sex: Female
  Weight: 90.7 kg

DRUGS (3)
  1. WELLBUTRIN [Concomitant]
     Active Substance: BUPROPION HYDROCHLORIDE
     Dosage: UNK
     Dates: start: 2001
  2. BUPROPION. [Concomitant]
     Active Substance: BUPROPION
     Dosage: UNK
     Dates: start: 2001
  3. EFFEXOR XR [Suspect]
     Active Substance: VENLAFAXINE HYDROCHLORIDE
     Indication: DEPRESSION
     Dosage: ^3 X 15 MG EVERY A.M.^
     Dates: start: 2000

REACTIONS (9)
  - Suicidal behaviour [Recovered/Resolved]
  - Homicidal ideation [Recovered/Resolved]
  - Conversion disorder [Recovered/Resolved]
  - Behaviour disorder [Recovered/Resolved]
  - Personality disorder [Recovered/Resolved]
  - Suicide threat [Recovered/Resolved]
  - Attention deficit/hyperactivity disorder [Recovered/Resolved]
  - Suicidal ideation [Recovered/Resolved]
  - Emotional disorder [Recovered/Resolved]

NARRATIVE: CASE EVENT DATE: 20190919
